FAERS Safety Report 11825012 (Version 2)
Quarter: 2016Q2

REPORT INFORMATION
  Report Type: Report from Study
  Country: AR (occurrence: AR)
  Receive Date: 20151211
  Receipt Date: 20160505
  Transmission Date: 20160815
  Serious: Yes (Hospitalization)
  Sender: FDA-Public Use
  Company Number: PHHY2015AR151708

PATIENT
  Age: 11 Year
  Sex: Male

DRUGS (3)
  1. AMOXICILLIN. [Concomitant]
     Active Substance: AMOXICILLIN
     Indication: PRODUCT USED FOR UNKNOWN INDICATION
     Dosage: 500 MG, QD
     Route: 065
  2. FOLIC ACID. [Concomitant]
     Active Substance: FOLIC ACID
     Indication: PRODUCT USED FOR UNKNOWN INDICATION
     Dosage: 5 MG, QD
     Route: 065
  3. EXJADE [Suspect]
     Active Substance: DEFERASIROX
     Indication: HAEMOLYTIC ANAEMIA
     Dosage: 25 MG/KG, QD
     Route: 065
     Dates: start: 2011, end: 20151030

REACTIONS (9)
  - Optic neuritis [Recovering/Resolving]
  - Visual acuity reduced [Recovering/Resolving]
  - Ocular toxicity [Recovering/Resolving]
  - Chromatopsia [Recovering/Resolving]
  - Infection [Unknown]
  - Cholelithiasis [Unknown]
  - Blindness [Recovering/Resolving]
  - Pupillary disorder [Recovering/Resolving]
  - Vision blurred [Recovering/Resolving]

NARRATIVE: CASE EVENT DATE: 201511
